FAERS Safety Report 10593893 (Version 2)
Quarter: 2014Q4

REPORT INFORMATION
  Report Type: Report from Study
  Country: DE (occurrence: DE)
  Receive Date: 20141119
  Receipt Date: 20141222
  Transmission Date: 20150529
  Serious: Yes (Other)
  Sender: FDA-Public Use
  Company Number: DE-ABBVIE-14K-062-1308680-00

PATIENT
  Age: 33 Year
  Sex: Male
  Weight: 78 kg

DRUGS (2)
  1. ALLOPURINOL. [Suspect]
     Active Substance: ALLOPURINOL
     Indication: GOUT
     Route: 048
  2. HUMIRA [Suspect]
     Active Substance: ADALIMUMAB
     Indication: CROHN^S DISEASE
     Route: 058
     Dates: start: 20110517, end: 20141018

REACTIONS (25)
  - Pain in extremity [Not Recovered/Not Resolved]
  - Demyelination [Unknown]
  - Limb deformity [Unknown]
  - Dysaesthesia [Not Recovered/Not Resolved]
  - Muscular weakness [Unknown]
  - Hypoaesthesia [Unknown]
  - Gamma-glutamyltransferase increased [Unknown]
  - Unevaluable event [Unknown]
  - Pupils unequal [Unknown]
  - Blood glucose increased [Unknown]
  - Paraesthesia [Not Recovered/Not Resolved]
  - Balance disorder [Not Recovered/Not Resolved]
  - Central nervous system inflammation [Not Recovered/Not Resolved]
  - Gait disturbance [Unknown]
  - Alanine aminotransferase increased [Unknown]
  - Sensory disturbance [Recovering/Resolving]
  - Visual impairment [Unknown]
  - Paraesthesia [Unknown]
  - Lymphadenopathy [Unknown]
  - Multiple sclerosis [Not Recovered/Not Resolved]
  - Conjunctivitis [Unknown]
  - Fall [Unknown]
  - Paraesthesia [Unknown]
  - CSF protein increased [Unknown]
  - Central nervous system lesion [Unknown]

NARRATIVE: CASE EVENT DATE: 2013
